FAERS Safety Report 8468891-5 (Version None)
Quarter: 2012Q2

REPORT INFORMATION
  Report Type: 
  Country: None (occurrence: None)
  Receive Date: 20120626
  Receipt Date: 20111111
  Transmission Date: 20120825
  Serious: Yes (Other)
  Sender: FDA-Public Use
  Company Number: US-ROCHE-1013790

PATIENT
  Sex: Male

DRUGS (3)
  1. TEMOZOLOMIDE [Suspect]
     Indication: NEUROBLASTOMA
     Dosage: DATE OF LAST DOSE PRIOR TO SAE 04 NOV 2011
     Dates: start: 20110708
  2. AVASTIN [Suspect]
     Indication: NEUROBLASTOMA
     Dosage: DATE OF LAST DOSE PRIOR TO SAE04 NOV 2011
     Dates: start: 20110708
  3. IRINOTECAN HCL [Suspect]
     Indication: NEUROBLASTOMA
     Dosage: DATE OF LAST DOSE PRIOR TO SAE 04 NOV 2011
     Dates: start: 20110708

REACTIONS (1)
  - HYPERKALAEMIA [None]
